FAERS Safety Report 20559612 (Version 1)
Quarter: 2022Q1

REPORT INFORMATION
  Report Type: Spontaneous
  Country: US (occurrence: US)
  Receive Date: 20220307
  Receipt Date: 20220307
  Transmission Date: 20220423
  Serious: Yes (Hospitalization)
  Sender: FDA-Public Use
  Company Number: US-SA-SAC20220304000752

PATIENT
  Age: 38 Year
  Sex: Female

DRUGS (1)
  1. DUPIXENT [Suspect]
     Active Substance: DUPILUMAB
     Indication: Asthma
     Dosage: 300 MG, QOW
     Route: 058
     Dates: start: 20210817

REACTIONS (4)
  - Dyspnoea [Unknown]
  - Weight increased [Unknown]
  - Oral herpes [Unknown]
  - Product use issue [Unknown]

NARRATIVE: CASE EVENT DATE: 20210817
